FAERS Safety Report 16243884 (Version 1)
Quarter: 2019Q2

REPORT INFORMATION
  Report Type: Spontaneous
  Country: US (occurrence: US)
  Receive Date: 20190425
  Receipt Date: 20190425
  Transmission Date: 20190711
  Serious: Yes (Other)
  Sender: FDA-Public Use
  Company Number: None

PATIENT
  Age: 68 Year
  Sex: Female
  Weight: 42.6 kg

DRUGS (2)
  1. ALTEPLASE. [Suspect]
     Active Substance: ALTEPLASE
     Indication: VERTEBRAL ARTERY OCCLUSION
     Dosage: ?          OTHER FREQUENCY:ONCE;?
     Route: 042
     Dates: start: 20190416, end: 20190416
  2. IOPAMIDOL [Suspect]
     Active Substance: IOPAMIDOL
     Indication: VERTEBRAL ARTERY OCCLUSION
     Dosage: ?          OTHER FREQUENCY:ONCE;?
     Route: 042
     Dates: start: 20190416, end: 20190416

REACTIONS (1)
  - Angioedema [None]

NARRATIVE: CASE EVENT DATE: 20190416
